FAERS Safety Report 10610212 (Version 3)
Quarter: 2015Q1

REPORT INFORMATION
  Report Type: Spontaneous
  Country: US (occurrence: US)
  Receive Date: 20141126
  Receipt Date: 20150106
  Transmission Date: 20150720
  Serious: No
  Sender: FDA-Public Use
  Company Number: US-PFIZER INC-2014323506

PATIENT
  Age: 63 Year
  Sex: Female
  Weight: 68 kg

DRUGS (12)
  1. REVATIO [Suspect]
     Active Substance: SILDENAFIL CITRATE
     Indication: RAYNAUD^S PHENOMENON
     Dosage: 20 MG, 2X/DAY
     Route: 048
  2. ASPIRIN. [Concomitant]
     Active Substance: ASPIRIN
     Indication: PAIN
     Dosage: 81 MG, 1-2 TABS EVERY 4-6 HOURS AS NEEDED FOR PAIN
     Route: 048
  3. AMITRIPTYLINE HYDROCHLORIDE. [Concomitant]
     Active Substance: AMITRIPTYLINE HYDROCHLORIDE
     Dosage: 100 MG, 1X/DAY
     Route: 048
  4. CITALOPRAM HYDROBROMIDE. [Concomitant]
     Active Substance: CITALOPRAM HYDROBROMIDE
     Dosage: 20 MG, 1X/DAY(ONE YEARS MEDICATION)
     Route: 048
  5. NYSTATIN. [Concomitant]
     Active Substance: NYSTATIN
     Dosage: 100,000 UNIT/ML SUSPENSION SWISH AND SWALLOW 4 TIMES DAILY
  6. AMLODIPINE BESILATE [Suspect]
     Active Substance: AMLODIPINE BESYLATE
     Indication: RAYNAUD^S PHENOMENON
     Dosage: UNK
  7. GABAPENTIN. [Concomitant]
     Active Substance: GABAPENTIN
     Dosage: 300 MG, 1X/DAY AT BEDTIME
  8. LIDOCAINE. [Concomitant]
     Active Substance: LIDOCAINE
     Indication: PAIN
     Dosage: APPLY SPARINGLY TO UNOPEN SKIN ON FINGER UP TO FOUR TIMES DAILY FOR PAIN5 %, 4X/DAY
  9. AMMONIUM LACTATE. [Concomitant]
     Active Substance: AMMONIUM LACTATE
     Dosage: 12 %, APPLY 2-3 TIMES A DAY AS NEEDED
  10. OMEPRAZOLE. [Concomitant]
     Active Substance: OMEPRAZOLE
     Dosage: 40 MG, 2X/DAY
     Route: 048
  11. LEVOTHYROXINE SODIUM. [Concomitant]
     Active Substance: LEVOTHYROXINE SODIUM
     Dosage: 150 ?G, 1X/DAY
     Route: 048
  12. DHEA [Concomitant]
     Active Substance: DEHYDROEPIANDROSTERONE-3-SULFATE SODIUM
     Dosage: 25 MG, UNK

REACTIONS (4)
  - Off label use [Unknown]
  - Therapeutic response unexpected [Unknown]
  - Nasopharyngitis [Unknown]
  - Pre-existing condition improved [Unknown]
